FAERS Safety Report 9376820 (Version 2)
Quarter: 2013Q3

REPORT INFORMATION
  Report Type: Spontaneous
  Country: US (occurrence: US)
  Receive Date: 20130701
  Receipt Date: 20130819
  Transmission Date: 20140515
  Serious: Yes (Death, Other)
  Sender: FDA-Public Use
  Company Number: US-JNJFOC-20130619190

PATIENT
  Sex: Female
  Weight: 64.05 kg

DRUGS (15)
  1. XARELTO [Suspect]
     Indication: ROUTINE HEALTH MAINTENANCE
     Route: 048
     Dates: start: 20121106
  2. LORAZEPAM [Concomitant]
     Indication: INSOMNIA
     Route: 048
     Dates: start: 20121227
  3. DIGOXIN [Concomitant]
     Indication: ROUTINE HEALTH MAINTENANCE
     Route: 048
     Dates: start: 20120625
  4. FLUVIRIN [Concomitant]
     Route: 065
     Dates: start: 20120930
  5. LISINOPRIL [Concomitant]
     Route: 048
     Dates: start: 20120227
  6. LISINOPRIL [Concomitant]
     Route: 048
     Dates: start: 20120227
  7. METOPROLOL SUCCINATE [Concomitant]
     Route: 048
     Dates: start: 20120629
  8. METOPROLOL SUCCINATE [Concomitant]
     Dosage: Q AM WITH 100 MG TABLET
     Route: 048
     Dates: start: 20121012
  9. PNEUMOVAX [Concomitant]
     Dosage: 23 25 MCG/0.5ML
     Route: 065
     Dates: start: 20120930
  10. PRAVASTATIN SODIUM [Concomitant]
     Dosage: DAILY AT BEDTIME
     Route: 048
     Dates: start: 20121226
  11. PRILOSEC [Concomitant]
     Route: 048
     Dates: start: 20120629
  12. POTASSIUM CHLORIDE [Concomitant]
     Route: 048
     Dates: start: 20121224
  13. HYDROCHLOROTHIAZIDE [Concomitant]
     Route: 048
     Dates: start: 20120629
  14. PNEUMOVAX [Concomitant]
     Route: 065
     Dates: start: 20120930
  15. PNEUMOVAX [Concomitant]
     Route: 065
     Dates: start: 20120930

REACTIONS (6)
  - Death [Fatal]
  - Pancreatitis relapsing [Recovered/Resolved]
  - Tricuspid valve incompetence [Unknown]
  - Pulmonary valve incompetence [Unknown]
  - Sinus congestion [Unknown]
  - Cough [Unknown]
